FAERS Safety Report 19004566 (Version 1)
Quarter: 2021Q1

REPORT INFORMATION
  Report Type: Report from Study
  Country: DE (occurrence: DE)
  Receive Date: 20210312
  Receipt Date: 20210312
  Transmission Date: 20210420
  Serious: Yes (Hospitalization)
  Sender: FDA-Public Use
  Company Number: DE-TAKEDA-2013BAX046996

PATIENT
  Age: 32 Year
  Sex: Male
  Weight: 91 kg

DRUGS (26)
  1. ADVATE [Suspect]
     Active Substance: ANTIHEMOPHILIC FACTOR, HUMAN RECOMBINANT
     Indication: FACTOR VIII DEFICIENCY
     Dosage: 2000 INTERNATIONAL UNIT, QOD
     Route: 065
  2. ADVATE [Suspect]
     Active Substance: ANTIHEMOPHILIC FACTOR, HUMAN RECOMBINANT
     Indication: PROPHYLAXIS
     Dosage: 2000IU (INTERNATIONAL UNIT)3X A WEEK
     Route: 065
     Dates: start: 20130208, end: 20130731
  3. ADVATE [Suspect]
     Active Substance: ANTIHEMOPHILIC FACTOR, HUMAN RECOMBINANT
     Indication: PROPHYLAXIS
     Dosage: 2000IU (INTERNATIONAL UNIT)3X A WEEK
     Route: 065
     Dates: start: 20130208, end: 20130731
  4. MOMETASON [Concomitant]
     Active Substance: MOMETASONE FUROATE
     Indication: SINUSITIS
     Dosage: 50 UG
     Route: 045
     Dates: start: 20121210
  5. ADVATE [Suspect]
     Active Substance: ANTIHEMOPHILIC FACTOR, HUMAN RECOMBINANT
     Indication: PROPHYLAXIS
     Dosage: 2000IU (INTERNATIONAL UNIT)3X A WEEK
     Route: 065
     Dates: start: 20130208, end: 20130731
  6. ADVATE [Suspect]
     Active Substance: ANTIHEMOPHILIC FACTOR, HUMAN RECOMBINANT
     Dosage: 2000 INTERNATIONAL UNIT, QOD
     Route: 065
     Dates: start: 20131023
  7. IDEOS [Concomitant]
     Active Substance: CALCIUM CARBONATE\CHOLECALCIFEROL
     Indication: ARTHROPATHY
     Dosage: 400 IU/1250MG
     Route: 048
     Dates: start: 20110114
  8. KORTISON [Concomitant]
     Active Substance: CORTISONE ACETATE
     Indication: ROTATOR CUFF SYNDROME
     Dosage: UNK
     Route: 014
     Dates: start: 201704, end: 201704
  9. ADVATE [Suspect]
     Active Substance: ANTIHEMOPHILIC FACTOR, HUMAN RECOMBINANT
     Indication: FACTOR VIII DEFICIENCY
     Dosage: 2000 INTERNATIONAL UNIT, QOD
     Route: 065
  10. ADVATE [Suspect]
     Active Substance: ANTIHEMOPHILIC FACTOR, HUMAN RECOMBINANT
     Indication: FACTOR VIII DEFICIENCY
     Dosage: 2000 INTERNATIONAL UNIT, QOD
     Route: 065
  11. ADVATE [Suspect]
     Active Substance: ANTIHEMOPHILIC FACTOR, HUMAN RECOMBINANT
     Dosage: 2000 INTERNATIONAL UNIT, BID
     Route: 065
     Dates: end: 20131015
  12. HYALURONIC ACID [Concomitant]
     Active Substance: HYALURONIC ACID
     Indication: OSTEOARTHRITIS
     Dosage: 5 TIMES
     Route: 014
  13. ADVATE [Suspect]
     Active Substance: ANTIHEMOPHILIC FACTOR, HUMAN RECOMBINANT
     Dosage: 2000 INTERNATIONAL UNIT, QOD
     Route: 065
     Dates: start: 20131023
  14. CEFUROXIM [Concomitant]
     Active Substance: CEFUROXIME
     Indication: SINUSITIS
     Dosage: 500MILLIGRAM2X A DAY
     Route: 048
     Dates: start: 20121201, end: 20121207
  15. ADVATE [Suspect]
     Active Substance: ANTIHEMOPHILIC FACTOR, HUMAN RECOMBINANT
     Dosage: 2000 INTERNATIONAL UNIT, 1/WEEK
     Route: 065
     Dates: start: 20130731
  16. ADVATE [Suspect]
     Active Substance: ANTIHEMOPHILIC FACTOR, HUMAN RECOMBINANT
     Dosage: 2000 INTERNATIONAL UNIT, QD
     Route: 065
     Dates: start: 20131016, end: 20131022
  17. MOMETASON [Concomitant]
     Active Substance: MOMETASONE FUROATE
     Dosage: 50 UG
     Route: 045
     Dates: start: 20150331
  18. CIPROFLOXACIN. [Concomitant]
     Active Substance: CIPROFLOXACIN
     Indication: COLITIS
     Dosage: 200MILLIGRAM2X A DAY
     Route: 048
     Dates: start: 201312
  19. ADVATE [Suspect]
     Active Substance: ANTIHEMOPHILIC FACTOR, HUMAN RECOMBINANT
     Dosage: 2000 INTERNATIONAL UNIT, 1/WEEK
     Route: 065
     Dates: start: 20130731
  20. ADVATE [Suspect]
     Active Substance: ANTIHEMOPHILIC FACTOR, HUMAN RECOMBINANT
     Dosage: 2000 INTERNATIONAL UNIT, 1/WEEK
     Route: 065
     Dates: start: 20130731
  21. IBUPROFEN. [Concomitant]
     Active Substance: IBUPROFEN
     Indication: ANALGESIC THERAPY
     Dosage: 400 MILLIGRAM
     Route: 048
  22. ADVATE [Suspect]
     Active Substance: ANTIHEMOPHILIC FACTOR, HUMAN RECOMBINANT
     Dosage: 2000 INTERNATIONAL UNIT, BID
     Route: 065
     Dates: end: 20131015
  23. ADVATE [Suspect]
     Active Substance: ANTIHEMOPHILIC FACTOR, HUMAN RECOMBINANT
     Dosage: 2000 INTERNATIONAL UNIT, BID
     Route: 065
     Dates: end: 20131015
  24. ADVATE [Suspect]
     Active Substance: ANTIHEMOPHILIC FACTOR, HUMAN RECOMBINANT
     Dosage: 2000 INTERNATIONAL UNIT, QD
     Route: 065
     Dates: start: 20131016, end: 20131022
  25. ADVATE [Suspect]
     Active Substance: ANTIHEMOPHILIC FACTOR, HUMAN RECOMBINANT
     Dosage: 2000 INTERNATIONAL UNIT, QD
     Route: 065
     Dates: start: 20131016, end: 20131022
  26. ADVATE [Suspect]
     Active Substance: ANTIHEMOPHILIC FACTOR, HUMAN RECOMBINANT
     Dosage: 2000 INTERNATIONAL UNIT, QOD
     Route: 065
     Dates: start: 20131023

REACTIONS (1)
  - Umbilical hernia [Recovered/Resolved]

NARRATIVE: CASE EVENT DATE: 20130801
